FAERS Safety Report 8106586-8 (Version None)
Quarter: 2011Q4

REPORT INFORMATION
  Report Type: 
  Country: None (occurrence: None)
  Receive Date: 20111222
  Receipt Date: 20111128
  Transmission Date: 20120403
  Serious: Yes (Death, Hospitalization)
  Sender: FDA-Public Use
  Company Number: UTC-012471

PATIENT
  Age: 66 Year
  Sex: Female
  Weight: 74.5 kg

DRUGS (2)
  1. TYVASO [Suspect]
     Indication: PULMONARY ARTERIAL HYPERTENSION
     Dosage: 18-54 MICROGRAMS (4 IN 1 D),INHALATION
     Route: 055
     Dates: start: 20100805, end: 20111128
  2. REVATIO [Concomitant]

REACTIONS (6)
  - FALL [None]
  - DEHYDRATION [None]
  - MEDICATION ERROR [None]
  - JOINT INJURY [None]
  - URINARY TRACT INFECTION [None]
  - DEATH [None]
